FAERS Safety Report 8996827 (Version 1)
Quarter: 2012Q4

REPORT INFORMATION
  Report Type: Spontaneous
  Country: US (occurrence: None)
  Receive Date: 20121228
  Receipt Date: 20121228
  Transmission Date: 20130627
  Serious: Yes (Disabling, Other)
  Sender: FDA-Public Use
  Company Number: None

PATIENT
  Age: 63 Year
  Sex: Male
  Weight: 108.86 kg

DRUGS (2)
  1. AVODART [Suspect]
     Indication: BPH
     Dosage: 0.5mg 1 x day  by mouth
     Route: 048
     Dates: start: 2001, end: 201208
  2. TAMSULOSIN [Suspect]
     Indication: BPH
     Dosage: 0.4mg  1 x day  by mouth
     Route: 048
     Dates: start: 1998, end: 201208

REACTIONS (2)
  - Hypotension [None]
  - Ejection fraction decreased [None]
